FAERS Safety Report 18790923 (Version 4)
Quarter: 2021Q2

REPORT INFORMATION
  Report Type: Spontaneous
  Country: IT (occurrence: IT)
  Receive Date: 20210126
  Receipt Date: 20210422
  Transmission Date: 20210717
  Serious: Yes (Hospitalization, Other)
  Sender: FDA-Public Use
  Company Number: IT-TAKEDA-2021TUS004708

PATIENT
  Age: 65 Year
  Sex: Male

DRUGS (8)
  1. BENDAMUSTINE HYDROCHLORIDE. [Concomitant]
     Active Substance: BENDAMUSTINE HYDROCHLORIDE
     Indication: LYMPHOCYTIC LYMPHOMA
     Dosage: UNK
     Route: 065
  2. BENDAMUSTINA ACCORD [Suspect]
     Active Substance: BENDAMUSTINE HYDROCHLORIDE
     Indication: NON-HODGKIN^S LYMPHOMA
     Dosage: 170 MILLIGRAM, QD
     Route: 042
     Dates: start: 20201116, end: 20201117
  3. CARDIOASPIRIN [Concomitant]
     Active Substance: ASPIRIN
     Dosage: UNK
     Route: 065
  4. BACTRIM [Suspect]
     Active Substance: SULFAMETHOXAZOLE\TRIMETHOPRIM
     Indication: PROPHYLAXIS
     Dosage: 960 MILLIGRAM, QD
     Route: 048
     Dates: start: 20201116, end: 20201204
  5. RIXATHON [Suspect]
     Active Substance: RITUXIMAB
     Indication: NON-HODGKIN^S LYMPHOMA
     Dosage: 700 MILLIGRAM, CYCLIC
     Route: 042
     Dates: start: 20201116, end: 20201116
  6. ACICLOVIR [Concomitant]
     Active Substance: ACYCLOVIR
     Dosage: UNK
     Route: 065
  7. DELTACORTENE [Concomitant]
     Active Substance: PREDNISONE
     Dosage: UNK
     Route: 065
  8. ADENURIC [Suspect]
     Active Substance: FEBUXOSTAT
     Indication: BLOOD URIC ACID INCREASED
     Dosage: 80 MILLIGRAM, QD
     Route: 048
     Dates: start: 20201116, end: 20201204

REACTIONS (4)
  - Skin exfoliation [Recovered/Resolved]
  - Stevens-Johnson syndrome [Recovered/Resolved]
  - Genital erythema [Recovered/Resolved]
  - Stomatitis [Recovered/Resolved]

NARRATIVE: CASE EVENT DATE: 20201204
